FAERS Safety Report 8471176-4 (Version None)
Quarter: 2012Q2

REPORT INFORMATION
  Report Type: 
  Country: None (occurrence: None)
  Receive Date: 20120621
  Receipt Date: 20120611
  Transmission Date: 20120825
  Serious: Yes (Hospitalization)
  Sender: FDA-Public Use
  Company Number: DSJ-2012-10882

PATIENT
  Age: 5 Decade
  Sex: Male

DRUGS (4)
  1. BENICAR [Suspect]
     Indication: HYPERTENSION
     Dosage: 20 MG (20 MG, 1 IN 1 D), PER ORAL
     Route: 048
     Dates: start: 20090101, end: 20120301
  2. VALSARTAN/HYDROCHLOROTHIAZIDE (HYDROCHLOROTHIAZIDE, VALSARTAN) (HYDROC [Concomitant]
  3. AMLODIPINE [Concomitant]
  4. ATENOLOL [Concomitant]

REACTIONS (5)
  - INGUINAL HERNIA [None]
  - VARICOSE VEIN OPERATION [None]
  - BLOOD PRESSURE SYSTOLIC INCREASED [None]
  - UMBILICAL HERNIA [None]
  - DRUG INEFFECTIVE [None]
